FAERS Safety Report 24875165 (Version 1)
Quarter: 2025Q1

REPORT INFORMATION
  Report Type: Other
  Country: GB (occurrence: GB)
  Receive Date: 20250122
  Receipt Date: 20250122
  Transmission Date: 20250409
  Serious: Yes (Other)
  Sender: GLENMARK
  Company Number: None

PATIENT

DRUGS (1)
  1. ROSUVASTATIN CALCIUM [Suspect]
     Active Substance: ROSUVASTATIN CALCIUM
     Indication: Total cholesterol/HDL ratio
     Route: 065
     Dates: start: 20240124, end: 20240829

REACTIONS (6)
  - Diabetes mellitus [Not Recovered/Not Resolved]
  - Medication error [Unknown]
  - Somnolence [Unknown]
  - Gout [Unknown]
  - Vision blurred [Unknown]
  - Mood altered [Unknown]
